FAERS Safety Report 10276396 (Version 5)
Quarter: 2020Q1

REPORT INFORMATION
  Report Type: Spontaneous
  Country: US (occurrence: US)
  Receive Date: 20140703
  Receipt Date: 20200318
  Transmission Date: 20200409
  Serious: Yes (Hospitalization)
  Sender: FDA-Public Use
  Company Number: US-JNJFOC-20140618760

PATIENT
  Age: 51 Year
  Sex: Male
  Weight: 81.27 kg

DRUGS (6)
  1. XARELTO [Suspect]
     Active Substance: RIVAROXABAN
     Indication: DEEP VEIN THROMBOSIS
     Route: 048
     Dates: start: 201302, end: 201402
  2. SINGULAIR [Concomitant]
     Active Substance: MONTELUKAST SODIUM
  3. COLCHICINE. [Concomitant]
     Active Substance: COLCHICINE
     Indication: GOUT
  4. ALLOPURINOL. [Concomitant]
     Active Substance: ALLOPURINOL
     Indication: GOUT
  5. FISH OIL [Concomitant]
     Active Substance: FISH OIL
  6. XARELTO [Suspect]
     Active Substance: RIVAROXABAN
     Indication: PULMONARY EMBOLISM
     Dosage: PRESCRIPTION NUMBER: 2977374-04745
     Route: 048
     Dates: start: 201407

REACTIONS (7)
  - Dyspnoea [Unknown]
  - Swelling [Unknown]
  - Drug ineffective [Unknown]
  - Deep vein thrombosis [Not Recovered/Not Resolved]
  - Thrombosis [Unknown]
  - Abnormal weight gain [Unknown]
  - Pulmonary embolism [Not Recovered/Not Resolved]

NARRATIVE: CASE EVENT DATE: 201406
